FAERS Safety Report 15266435 (Version 1)
Quarter: 2018Q3

REPORT INFORMATION
  Report Type: Spontaneous
  Country: US (occurrence: US)
  Receive Date: 20180810
  Receipt Date: 20180810
  Transmission Date: 20181010
  Serious: Yes (Other)
  Sender: FDA-Public Use
  Company Number: US-BAYER-2018-145184

PATIENT
  Age: 43 Year
  Sex: Female

DRUGS (3)
  1. MIRENA [Suspect]
     Active Substance: LEVONORGESTREL
     Indication: CONTRACEPTION
     Dosage: 20 MCG/24HR, CONT
     Route: 015
  2. MIRENA [Suspect]
     Active Substance: LEVONORGESTREL
     Indication: CONTRACEPTION
     Dosage: 20 MCG/24HR, CONT
     Route: 015
     Dates: start: 2015
  3. MIRENA [Suspect]
     Active Substance: LEVONORGESTREL
     Indication: CONTRACEPTION
     Dosage: 20 MCG/24HR, CONT
     Route: 015

REACTIONS (11)
  - Drug hypersensitivity [None]
  - Blister [None]
  - Abdominal pain lower [Not Recovered/Not Resolved]
  - Mood altered [None]
  - Pruritus [None]
  - Polymenorrhoea [Not Recovered/Not Resolved]
  - Hot flush [None]
  - Back pain [None]
  - Hyperhidrosis [None]
  - Genital haemorrhage [None]
  - Infertility female [None]
